FAERS Safety Report 12971175 (Version 3)
Quarter: 2016Q4

REPORT INFORMATION
  Report Type: Spontaneous
  Country: US (occurrence: US)
  Receive Date: 20161123
  Receipt Date: 20161221
  Transmission Date: 20170207
  Serious: No
  Sender: FDA-Public Use
  Company Number: US-JAZZ-2016-US-019185

PATIENT
  Age: 22 Year
  Sex: Female

DRUGS (55)
  1. AMANTADINE [Concomitant]
     Active Substance: AMANTADINE
  2. CYMBALTA [Concomitant]
     Active Substance: DULOXETINE HYDROCHLORIDE
  3. MEDROL [Concomitant]
     Active Substance: METHYLPREDNISOLONE
  4. NAPROXEN. [Concomitant]
     Active Substance: NAPROXEN
  5. ZANTAC [Concomitant]
     Active Substance: RANITIDINE HYDROCHLORIDE
  6. XYREM [Suspect]
     Active Substance: SODIUM OXYBATE
     Indication: SLEEP DISORDER
     Dosage: 4.5 G, BID
     Route: 048
     Dates: start: 201609, end: 201609
  7. NABUMETONE. [Concomitant]
     Active Substance: NABUMETONE
  8. PREDNISONE. [Concomitant]
     Active Substance: PREDNISONE
  9. WELLBUTRIN [Concomitant]
     Active Substance: BUPROPION HYDROCHLORIDE
  10. ZANAFLEX [Concomitant]
     Active Substance: TIZANIDINE HYDROCHLORIDE
  11. BUSPIRONE HCL [Concomitant]
     Active Substance: BUSPIRONE HYDROCHLORIDE
  12. COMPAZINE                          /00013302/ [Concomitant]
     Active Substance: PROCHLORPERAZINE EDISYLATE
  13. DOXEPIN [Concomitant]
     Active Substance: DOXEPIN
  14. IMITREX [Concomitant]
     Active Substance: SUMATRIPTAN SUCCINATE
  15. LUNESTA [Concomitant]
     Active Substance: ESZOPICLONE
  16. PROZAC [Concomitant]
     Active Substance: FLUOXETINE HYDROCHLORIDE
  17. ROBAXIN [Concomitant]
     Active Substance: METHOCARBAMOL
  18. CYCLOBENZAPRINE [Concomitant]
     Active Substance: CYCLOBENZAPRINE
  19. DOCUSATE SODIUM. [Concomitant]
     Active Substance: DOCUSATE SODIUM
  20. HYDROCORTISONE. [Concomitant]
     Active Substance: HYDROCORTISONE
  21. ORPHENADRINE [Concomitant]
     Active Substance: ORPHENADRINE
  22. PIROXICAM. [Concomitant]
     Active Substance: PIROXICAM
  23. PROMETHAZINE [Concomitant]
     Active Substance: PROMETHAZINE\PROMETHAZINE HYDROCHLORIDE
  24. PROPRANOLOL [Concomitant]
     Active Substance: PROPRANOLOL\PROPRANOLOL HYDROCHLORIDE
  25. SOMA [Concomitant]
     Active Substance: CARISOPRODOL
  26. TOPAMAX [Concomitant]
     Active Substance: TOPIRAMATE
  27. VALIUM [Concomitant]
     Active Substance: DIAZEPAM
  28. ZOFRAN [Concomitant]
     Active Substance: ONDANSETRON HYDROCHLORIDE
  29. ACETAMINOPHEN AND CODEINE [Concomitant]
     Active Substance: ACETAMINOPHEN\CODEINE PHOSPHATE
  30. AMBIEN [Concomitant]
     Active Substance: ZOLPIDEM TARTRATE
  31. BUTRANS [Concomitant]
     Active Substance: BUPRENORPHINE
  32. CLARITIN-D 12 HOUR [Concomitant]
     Active Substance: LORATADINE\PSEUDOEPHEDRINE SULFATE
  33. LAMOTRIGINE. [Concomitant]
     Active Substance: LAMOTRIGINE
  34. NEURONTIN [Concomitant]
     Active Substance: GABAPENTIN
  35. REGLAN [Concomitant]
     Active Substance: METOCLOPRAMIDE HYDROCHLORIDE
  36. REQUIP [Concomitant]
     Active Substance: ROPINIROLE HYDROCHLORIDE
  37. TRAMADOL. [Concomitant]
     Active Substance: TRAMADOL
  38. XYREM [Suspect]
     Active Substance: SODIUM OXYBATE
     Dosage: 4.5 G, QD
     Route: 048
     Dates: start: 201609
  39. BACLOFEN. [Concomitant]
     Active Substance: BACLOFEN
  40. FOLIC ACID. [Concomitant]
     Active Substance: FOLIC ACID
  41. KLONOPIN [Concomitant]
     Active Substance: CLONAZEPAM
  42. LEVSIN SL [Concomitant]
     Active Substance: HYOSCYAMINE SULFATE
  43. MOBIC [Concomitant]
     Active Substance: MELOXICAM
  44. SEROQUEL [Concomitant]
     Active Substance: QUETIAPINE FUMARATE
  45. SYNTHROID [Concomitant]
     Active Substance: LEVOTHYROXINE SODIUM
  46. ALPRAZOLAM. [Concomitant]
     Active Substance: ALPRAZOLAM
  47. FIORICET [Concomitant]
     Active Substance: ACETAMINOPHEN\BUTALBITAL\CAFFEINE
  48. IBUPROFEN. [Concomitant]
     Active Substance: IBUPROFEN
  49. SINEMET [Concomitant]
     Active Substance: CARBIDOPA\LEVODOPA
  50. SPIRONOLACTONE. [Concomitant]
     Active Substance: SPIRONOLACTONE
  51. AMITRIPTYLINE HCL [Concomitant]
     Active Substance: AMITRIPTYLINE
  52. CEFTIN [Concomitant]
     Active Substance: CEFUROXIME AXETIL
  53. FLONASE                            /00908302/ [Concomitant]
     Active Substance: MOMETASONE FUROATE
  54. LYRICA [Concomitant]
     Active Substance: PREGABALIN
  55. OMEPRAZOLE. [Concomitant]
     Active Substance: OMEPRAZOLE

REACTIONS (1)
  - Essential tremor [Recovered/Resolved]

NARRATIVE: CASE EVENT DATE: 201609
